FAERS Safety Report 21458478 (Version 1)
Quarter: 2022Q4

REPORT INFORMATION
  Report Type: Spontaneous
  Country: US (occurrence: US)
  Receive Date: 20221014
  Receipt Date: 20221014
  Transmission Date: 20230113
  Serious: No
  Sender: FDA-Public Use
  Company Number: US-ALKERMES INC.-ALK-2022-004726

PATIENT
  Age: 38 Year
  Sex: Male

DRUGS (1)
  1. VIVITROL [Suspect]
     Active Substance: NALTREXONE
     Indication: Alcoholism
     Dosage: 380 MILLIGRAM, QMO
     Route: 030

REACTIONS (7)
  - Wrong technique in product usage process [Unknown]
  - Drug ineffective [Unknown]
  - Illness [Unknown]
  - Vomiting [Unknown]
  - Alcoholism [Unknown]
  - Injection site reaction [None]
  - Injection site pain [None]

NARRATIVE: CASE EVENT DATE: 20220906
